FAERS Safety Report 14543714 (Version 1)
Quarter: 2018Q1

REPORT INFORMATION
  Report Type: Spontaneous
  Country: GB (occurrence: GB)
  Receive Date: 20180216
  Receipt Date: 20180216
  Transmission Date: 20180509
  Serious: Yes (Hospitalization)
  Sender: FDA-Public Use
  Company Number: GB-009507513-1802GBR003411

PATIENT
  Age: 92 Year
  Sex: Male

DRUGS (10)
  1. FERROUS FUMARATE [Suspect]
     Active Substance: FERROUS FUMARATE
     Dosage: IN THE MORNING
  2. SODIUM BICARBONATE. [Suspect]
     Active Substance: SODIUM BICARBONATE
     Dosage: 3 G, QD
  3. OMEPRAZOLE. [Suspect]
     Active Substance: OMEPRAZOLE
     Dosage: 20 MG, QD
     Dates: start: 20171222
  4. SIMVASTATIN. [Suspect]
     Active Substance: SIMVASTATIN
     Dosage: AT NIGHT
  5. ASCORBIC ACID. [Suspect]
     Active Substance: ASCORBIC ACID
     Dosage: 500 MG, QD
  6. CLOPIDOGREL [Suspect]
     Active Substance: CLOPIDOGREL BISULFATE
     Dosage: IN THE MORNING
  7. AMLODIPINE [Suspect]
     Active Substance: AMLODIPINE BESYLATE
     Dosage: IN THE MORNING
  8. ASCORBIC ACID. [Suspect]
     Active Substance: ASCORBIC ACID
     Dosage: 200 MG, QD
  9. ARANESP [Suspect]
     Active Substance: DARBEPOETIN ALFA
  10. FOLIC ACID. [Suspect]
     Active Substance: FOLIC ACID
     Dosage: IN THE MORNING

REACTIONS (1)
  - Ischaemic stroke [Not Recovered/Not Resolved]

NARRATIVE: CASE EVENT DATE: 20180119
